FAERS Safety Report 25857262 (Version 1)
Quarter: 2025Q3

REPORT INFORMATION
  Report Type: Spontaneous
  Country: US (occurrence: US)
  Receive Date: 20250929
  Receipt Date: 20250929
  Transmission Date: 20251020
  Serious: Yes (Other)
  Sender: GLENMARK
  Company Number: US-GLENMARK PHARMACEUTICALS-2025GMK104111

PATIENT

DRUGS (1)
  1. ROSUVASTATIN CALCIUM [Suspect]
     Active Substance: ROSUVASTATIN CALCIUM
     Indication: Arteriosclerosis
     Dosage: 20 MILLIGRAM, QD
     Route: 048
     Dates: start: 20250909

REACTIONS (5)
  - Haematochezia [Unknown]
  - Thrombosis [Unknown]
  - Epistaxis [Unknown]
  - Upper-airway cough syndrome [Unknown]
  - Constipation [Unknown]

NARRATIVE: CASE EVENT DATE: 20250910
